FAERS Safety Report 5203643-0 (Version None)
Quarter: 2007Q1

REPORT INFORMATION
  Report Type: 
  Country: None (occurrence: None)
  Receive Date: 20070110
  Receipt Date: 20070103
  Transmission Date: 20070707
  Serious: Yes (Death)
  Sender: FDA-Public Use
  Company Number: US-JNJFOC-20070101273

PATIENT
  Sex: Female
  Weight: 39.46 kg

DRUGS (1)
  1. DURAGESIC-100 [Suspect]
     Indication: ANALGESIC EFFECT
     Route: 062

REACTIONS (2)
  - NEOPLASM MALIGNANT [None]
  - TONGUE NEOPLASM MALIGNANT STAGE UNSPECIFIED [None]
